FAERS Safety Report 14755366 (Version 1)
Quarter: 2018Q2

REPORT INFORMATION
  Report Type: Report from Study
  Country: US (occurrence: US)
  Receive Date: 20180413
  Receipt Date: 20180413
  Transmission Date: 20180711
  Serious: Yes (Other)
  Sender: FDA-Public Use
  Company Number: US-ROCHE-2102222

PATIENT
  Sex: Male

DRUGS (1)
  1. OCREVUS [Suspect]
     Active Substance: OCRELIZUMAB
     Indication: PRODUCT USED FOR UNKNOWN INDICATION
     Dosage: HALF DOSE ?ONGOING-NO
     Route: 065

REACTIONS (4)
  - Emotional disorder [Unknown]
  - Malaise [Unknown]
  - Infection [Unknown]
  - Adrenocortical insufficiency acute [Unknown]
